FAERS Safety Report 5879109-1 (Version None)
Quarter: 2008Q3

REPORT INFORMATION
  Report Type: 
  Country: None (occurrence: None)
  Receive Date: 20080912
  Receipt Date: 20080812
  Transmission Date: 20090109
  Serious: No
  Sender: FDA-Public Use
  Company Number: US-BAYER-200826950NA

PATIENT
  Age: 44 Year
  Sex: Female
  Weight: 67 kg

DRUGS (2)
  1. MIRENA [Suspect]
     Indication: CONTRACEPTION
     Route: 015
     Dates: start: 20030101, end: 20060101
  2. MIRENA [Suspect]
     Route: 015
     Dates: start: 20060101

REACTIONS (8)
  - ABDOMINAL DISTENSION [None]
  - ABDOMINAL PAIN [None]
  - AMENORRHOEA [None]
  - BACK PAIN [None]
  - FATIGUE [None]
  - MENSTRUATION IRREGULAR [None]
  - MOOD SWINGS [None]
  - WEIGHT INCREASED [None]
